FAERS Safety Report 9565840 (Version 1)
Quarter: 2013Q3

REPORT INFORMATION
  Report Type: Spontaneous
  Country: SE (occurrence: SE)
  Receive Date: 20130930
  Receipt Date: 20130930
  Transmission Date: 20140515
  Serious: Yes (Hospitalization)
  Sender: FDA-Public Use
  Company Number: SE-ALLERGAN-1314829US

PATIENT
  Age: 76 Year
  Sex: Male

DRUGS (6)
  1. BOTOX [Suspect]
     Indication: MUSCLE SPASTICITY
     Dosage: 600 UNITS, SINGLE
     Route: 030
     Dates: start: 20110202, end: 20110202
  2. DETRUSITOL SR [Concomitant]
     Dosage: 4 MG, UNK
  3. FOLACIN [Concomitant]
     Dosage: 5 MG, UNK
  4. DUROFERON [Concomitant]
     Dosage: 100 MG, UNK
  5. INOLAXOL [Concomitant]
  6. SIRDALUD [Concomitant]

REACTIONS (7)
  - Botulism [Recovered/Resolved]
  - Dysphagia [Recovered/Resolved]
  - Paresis [Recovering/Resolving]
  - Off label use [Unknown]
  - Fatigue [Recovering/Resolving]
  - Asthenia [Recovering/Resolving]
  - Muscular weakness [Recovering/Resolving]
